FAERS Safety Report 13329604 (Version 1)
Quarter: 2017Q1

REPORT INFORMATION
  Report Type: Spontaneous
  Country: FR (occurrence: FR)
  Receive Date: 20170313
  Receipt Date: 20170313
  Transmission Date: 20170428
  Serious: Yes (Other)
  Sender: FDA-Public Use
  Company Number: FR-GLAXOSMITHKLINE-FR2017GSK021908

PATIENT
  Age: 41 Year
  Sex: Female

DRUGS (6)
  1. NICOPASS [Suspect]
     Active Substance: NICOTINE
     Indication: SMOKING CESSATION THERAPY
     Dosage: FLUCTUATING (SEE NARRATIVE)
     Route: 048
     Dates: start: 20161102
  2. NICOPASS [Suspect]
     Active Substance: NICOTINE
     Dosage: 2 LOZENGES/DAY
  3. NICOPASS [Suspect]
     Active Substance: NICOTINE
     Dosage: 4 LOZENGES/ DAY
  4. FLAGYL [Concomitant]
     Active Substance: METRONIDAZOLE\METRONIDAZOLE HYDROCHLORIDE
     Dosage: UNK
     Dates: start: 20170128, end: 20170128
  5. NICOPASS [Suspect]
     Active Substance: NICOTINE
     Dosage: 8-10 LOZENGES/DAY
  6. NICORETTE [Suspect]
     Active Substance: NICOTINE
     Indication: SMOKING CESSATION THERAPY
     Dosage: 1 DF, QD
     Route: 062
     Dates: start: 20170105, end: 20170203

REACTIONS (5)
  - Palpitations [Recovered/Resolved]
  - Dyspnoea [Recovered/Resolved]
  - Nicotine dependence [Recovered/Resolved]
  - Insomnia [Recovered/Resolved]
  - Overdose [Unknown]

NARRATIVE: CASE EVENT DATE: 20170128
